FAERS Safety Report 18589915 (Version 1)
Quarter: 2020Q4

REPORT INFORMATION
  Report Type: Spontaneous
  Country: US (occurrence: US)
  Receive Date: 20201205
  Receipt Date: 20201205
  Transmission Date: 20210114
  Serious: No
  Sender: FDA-Public Use
  Company Number: None

PATIENT
  Sex: Male

DRUGS (2)
  1. HUMIRA [Suspect]
     Active Substance: ADALIMUMAB
     Indication: PSORIASIS
     Dosage: OTHER DOSE:40/0.8MG/ML;OTHER FREQUENCY:EVERY 14 DAYS ;?
     Route: 058
     Dates: start: 202012, end: 202012
  2. HUMIRA [Suspect]
     Active Substance: ADALIMUMAB
     Indication: PSORIATIC ARTHROPATHY
     Dosage: OTHER DOSE:40/0.8MG/ML;OTHER FREQUENCY:EVERY 14 DAYS ;?
     Route: 058
     Dates: start: 202012, end: 202012

REACTIONS (3)
  - Injection site pain [None]
  - Pain of skin [None]
  - Skin burning sensation [None]
